FAERS Safety Report 4363194-2 (Version None)
Quarter: 2004Q2

REPORT INFORMATION
  Report Type: 
  Country: None (occurrence: None)
  Receive Date: 20040518
  Receipt Date: 20040427
  Transmission Date: 20050107
  Serious: Yes (Other)
  Sender: FDA-Public Use
  Company Number: CA-JNJFOC-20040406054

PATIENT
  Age: 16 Year
  Sex: Male
  Weight: 68.6 kg

DRUGS (2)
  1. CONCERTA [Suspect]
     Indication: INTENTIONAL MISUSE
     Dosage: 54 MG, INTRA-NASAL
     Route: 045
     Dates: start: 20040421, end: 20040421
  2. DEXEDRINE EXTENDED RELEASE (DEXAMFETAMINE SULFATE) [Concomitant]

REACTIONS (2)
  - INTENTIONAL MISUSE [None]
  - MEDICATION ERROR [None]
